FAERS Safety Report 6310475-9 (Version None)
Quarter: 2009Q3

REPORT INFORMATION
  Report Type: 
  Country: None (occurrence: None)
  Receive Date: 20090814
  Receipt Date: 20090728
  Transmission Date: 20100115
  Serious: No
  Sender: FDA-Public Use
  Company Number: US-BAYER-200912500BCC

PATIENT
  Age: 59 Year
  Sex: Male
  Weight: 113 kg

DRUGS (8)
  1. ALEVE (CAPLET) [Suspect]
     Indication: BURSITIS
     Dosage: TOTAL DAILY DOSE: 880 MG  UNIT DOSE: 220 MG
     Route: 048
     Dates: start: 20090713, end: 20090714
  2. ALEVE (CAPLET) [Suspect]
     Dosage: TOTAL DAILY DOSE: 440 MG  UNIT DOSE: 220 MG
     Route: 048
     Dates: start: 20090715, end: 20090701
  3. FUROSEMIDE [Concomitant]
     Route: 065
  4. DILTIAZEM [Concomitant]
     Route: 065
  5. SERTRALINE [Concomitant]
     Route: 065
  6. METOPROLOL [Concomitant]
     Route: 065
  7. GABAPENTIN [Concomitant]
     Route: 065
  8. CLONAZEPAM [Concomitant]
     Route: 065

REACTIONS (1)
  - ENURESIS [None]
